FAERS Safety Report 8859168 (Version 1)
Quarter: 2012Q4

REPORT INFORMATION
  Report Type: Spontaneous
  Country: GB (occurrence: None)
  Receive Date: 20121023
  Receipt Date: 20121023
  Transmission Date: 20130627
  Serious: Yes (Other)
  Sender: FDA-Public Use
  Company Number: 2012AP003394

PATIENT
  Age: 33 Year
  Sex: Female

DRUGS (4)
  1. OMEPRAZOLE (OMEPRAZOLE) [Suspect]
     Indication: DRUG USE FOR UNKNOWN INDICATION
     Dates: start: 20120627
  2. CETIRIZINE (CETIRIZINE) [Concomitant]
  3. HYDROCORTISONE (HYDROCORTISONE) [Concomitant]
  4. RANITIDINE (RANITIDINE) [Concomitant]

REACTIONS (1)
  - Epistaxis [None]
